FAERS Safety Report 24260435 (Version 1)
Quarter: 2024Q3

REPORT INFORMATION
  Report Type: Spontaneous
  Country: JP (occurrence: JP)
  Receive Date: 20240828
  Receipt Date: 20240828
  Transmission Date: 20241017
  Serious: Yes (Hospitalization, Disabling, Other)
  Sender: MERCK
  Company Number: JP-MSD-2408JPN002706J

PATIENT
  Age: 81 Year
  Sex: Male
  Weight: 71 kg

DRUGS (3)
  1. KEYTRUDA [Suspect]
     Active Substance: PEMBROLIZUMAB
     Indication: Bladder cancer
     Dosage: 200 MILLIGRAM
     Route: 041
     Dates: start: 20231004, end: 20240619
  2. AMLODIPINE BESYLATE [Concomitant]
     Active Substance: AMLODIPINE BESYLATE
     Dosage: UNK
     Route: 065
  3. FEBUXOSTAT [Concomitant]
     Active Substance: FEBUXOSTAT
     Dosage: UNK
     Route: 065

REACTIONS (4)
  - Immune-mediated adverse reaction [Recovered/Resolved with Sequelae]
  - End stage renal disease [Recovered/Resolved with Sequelae]
  - Goodpasture^s syndrome [Recovered/Resolved with Sequelae]
  - Glomerulonephritis rapidly progressive [Recovered/Resolved with Sequelae]

NARRATIVE: CASE EVENT DATE: 20240714
